FAERS Safety Report 6994947 (Version 11)
Quarter: 2018Q2

REPORT INFORMATION
  Report Type: Spontaneous
  Country: JP (occurrence: JP)
  Receive Date: 20090514
  Receipt Date: 20180605
  Transmission Date: 20180711
  Serious: Yes (Hospitalization, Other)
  Sender: FDA-Public Use
  Company Number: PHHY2009JP07225

PATIENT
  Age: 65 Year
  Sex: Male

DRUGS (3)
  1. DASATINIB. [Suspect]
     Active Substance: DASATINIB
     Indication: PRODUCT USED FOR UNKNOWN INDICATION
     Route: 065
  2. GLIVEC [Suspect]
     Active Substance: IMATINIB MESYLATE
     Dosage: 600 MG, QD
     Route: 048
     Dates: start: 20090105, end: 20090225
  3. GLIVEC [Suspect]
     Active Substance: IMATINIB MESYLATE
     Indication: CHRONIC MYELOID LEUKAEMIA
     Dosage: 800 MG, QD
     Route: 048
     Dates: start: 20080912, end: 20090104

REACTIONS (18)
  - Bronchoalveolar lavage abnormal [Unknown]
  - Back pain [Unknown]
  - Blood glucose increased [Recovered/Resolved]
  - Tumour marker increased [Unknown]
  - Interstitial lung disease [Recovering/Resolving]
  - Drug resistance [Unknown]
  - Condition aggravated [Recovering/Resolving]
  - Dyspnoea [Recovering/Resolving]
  - Pleural effusion [Recovering/Resolving]
  - Face oedema [Recovered/Resolved]
  - Alanine aminotransferase increased [Recovered/Resolved]
  - Blood sodium increased [Recovered/Resolved]
  - Aspartate aminotransferase increased [Recovered/Resolved]
  - Drug intolerance [Unknown]
  - Alveolar proteinosis [Recovering/Resolving]
  - Fatigue [Unknown]
  - Pancytopenia [Unknown]
  - Gamma-glutamyltransferase increased [Not Recovered/Not Resolved]

NARRATIVE: CASE EVENT DATE: 20080929
